FAERS Safety Report 11612075 (Version 1)
Quarter: 2015Q4

REPORT INFORMATION
  Report Type: Spontaneous
  Country: LB (occurrence: LB)
  Receive Date: 20151008
  Receipt Date: 20151008
  Transmission Date: 20160304
  Serious: Yes (Death, Other)
  Sender: FDA-Public Use
  Company Number: LB-GLAXOSMITHKLINE-LB2015GSK132825

PATIENT
  Age: 50 Year
  Sex: Female

DRUGS (1)
  1. VOTRIENT [Suspect]
     Active Substance: PAZOPANIB HYDROCHLORIDE
     Indication: SPINDLE CELL SARCOMA
     Dosage: 800 MG, 1D
     Route: 048
     Dates: start: 20150701, end: 201509

REACTIONS (3)
  - Localised infection [Fatal]
  - Sepsis [Fatal]
  - Disease progression [Unknown]

NARRATIVE: CASE EVENT DATE: 201509
